FAERS Safety Report 7745248-3 (Version None)
Quarter: 2011Q3

REPORT INFORMATION
  Report Type: 
  Country: None (occurrence: None)
  Receive Date: 20110913
  Receipt Date: 20110901
  Transmission Date: 20111222
  Serious: Yes (Other)
  Sender: FDA-Public Use
  Company Number: US-CELGENEUS-163-21880-11090372

PATIENT
  Sex: Male
  Weight: 72.8 kg

DRUGS (2)
  1. REVLIMID [Suspect]
     Indication: HODGKIN'S DISEASE
     Dosage: 25 MILLIGRAM
     Route: 048
     Dates: start: 20100720
  2. REVLIMID [Suspect]
     Dosage: DOSE REDUCTIONS UNTILL 5MG REACHED
     Route: 048
     Dates: start: 20110101, end: 20110612

REACTIONS (3)
  - NEUTROPENIA [None]
  - THROMBOCYTOPENIA [None]
  - MYELODYSPLASTIC SYNDROME [None]
